FAERS Safety Report 5291913-X (Version None)
Quarter: 2007Q2

REPORT INFORMATION
  Report Type: 
  Country: None (occurrence: None)
  Receive Date: 20070403
  Receipt Date: 20070320
  Transmission Date: 20071010
  Serious: Yes (Hospitalization)
  Sender: FDA-Public Use
  Company Number: 060001L07BEL

PATIENT
  Age: 41 Year
  Sex: Female

DRUGS (2)
  1. CLOMIPHENE CITRATE [Suspect]
     Indication: OVULATION INDUCTION
     Dosage: 14 CYCLE
  2. MENOTROPINS [Suspect]
     Indication: OVULATION INDUCTION
     Dosage: 14 CYCLE

REACTIONS (1)
  - OVARIAN CANCER [None]
